FAERS Safety Report 15082113 (Version 4)
Quarter: 2018Q3

REPORT INFORMATION
  Report Type: Spontaneous
  Country: JP (occurrence: JP)
  Receive Date: 20180628
  Receipt Date: 20180920
  Transmission Date: 20181010
  Serious: Yes (Hospitalization)
  Sender: FDA-Public Use
  Company Number: JP-ELI_LILLY_AND_COMPANY-JP201806009581

PATIENT
  Age: 66 Year
  Sex: Male
  Weight: 49 kg

DRUGS (9)
  1. GASMOTIN [Concomitant]
     Active Substance: MOSAPRIDE CITRATE
  2. SYMPROIC [Concomitant]
     Active Substance: NALDEMEDINE
     Dosage: 0.2 MG, DAILY
     Dates: start: 20180502
  3. THYRADIN [Concomitant]
     Active Substance: LEVOTHYROXINE
  4. NAUZELIN [Concomitant]
     Active Substance: DOMPERIDONE
  5. TAKECAB [Concomitant]
     Active Substance: VONOPRAZAN FUMURATE
  6. CYRAMZA [Suspect]
     Active Substance: RAMUCIRUMAB
     Indication: GASTRIC CANCER
     Dosage: 400 MG, UNK
     Route: 041
     Dates: start: 20171120, end: 20180523
  7. FENTOS [Concomitant]
     Active Substance: FENTANYL
  8. OXYCONTIN [Concomitant]
     Active Substance: OXYCODONE HYDROCHLORIDE
  9. NORVASC [Concomitant]
     Active Substance: AMLODIPINE BESYLATE

REACTIONS (3)
  - Tumour haemorrhage [Recovered/Resolved]
  - Diarrhoea [Recovered/Resolved]
  - Nephrotic syndrome [Not Recovered/Not Resolved]

NARRATIVE: CASE EVENT DATE: 2018
